FAERS Safety Report 8426968-4 (Version None)
Quarter: 2012Q2

REPORT INFORMATION
  Report Type: 
  Country: None (occurrence: None)
  Receive Date: 20120601
  Receipt Date: 20120521
  Transmission Date: 20120825
  Serious: Yes (Life-Threatening, Hospitalization)
  Sender: FDA-Public Use
  Company Number: ACO_30455_2012

PATIENT
  Age: 53 Year
  Sex: Male

DRUGS (8)
  1. ADVIL (MEFENAMIC ACID) [Concomitant]
  2. SAW PALMETTO (SERENOA REPENS) [Concomitant]
  3. AMPYRA [Suspect]
     Indication: MULTIPLE SCLEROSIS
  4. NUVIGIL [Concomitant]
  5. DALFAMPRIDINE ER 10MG (DALFAMPRIDINE ER) TABLET [Suspect]
     Indication: MULTIPLE SCLEROSIS
     Dosage: 10 MG, BID
     Dates: start: 20120305, end: 20120412
  6. TYSARBRI (NATALIZUMAB) [Concomitant]
  7. CYCLOBENZAPRINE [Concomitant]
  8. EFFEXOR [Concomitant]

REACTIONS (3)
  - ENCEPHALOPATHY [None]
  - COAGULOPATHY [None]
  - HEPATIC FAILURE [None]
